FAERS Safety Report 8906223 (Version 1)
Quarter: 2012Q4

REPORT INFORMATION
  Report Type: Spontaneous
  Country: US (occurrence: None)
  Receive Date: 20121106
  Receipt Date: 20121106
  Transmission Date: 20130627
  Serious: Yes (Hospitalization)
  Sender: FDA-Public Use
  Company Number: USA/USA/12/0026466

PATIENT
  Age: 64 Year
  Sex: Female

DRUGS (2)
  1. NAPROXEN (NAPROXEN) [Suspect]
     Indication: JOINT PAIN
  2. HYDROCHLOROTHIAZIDE (HYDROCHLOROTHIAZIDE) [Suspect]
     Indication: HYPERTENSION

REACTIONS (10)
  - Tubulointerstitial nephritis [None]
  - Renal failure [None]
  - Urinary tract infection [None]
  - Glycosuria [None]
  - Metabolic acidosis [None]
  - Hypokalaemia [None]
  - Escherichia test positive [None]
  - Staphylococcus test positive [None]
  - Laboratory test interference [None]
  - Urine potassium decreased [None]
